FAERS Safety Report 12839952 (Version 1)
Quarter: 2016Q4

REPORT INFORMATION
  Report Type: Spontaneous
  Country: US (occurrence: US)
  Receive Date: 20161012
  Receipt Date: 20161012
  Transmission Date: 20170207
  Serious: Yes (Other)
  Sender: FDA-Public Use
  Company Number: US-ELI_LILLY_AND_COMPANY-US201610001928

PATIENT
  Sex: Female

DRUGS (2)
  1. HUMULIN R [Suspect]
     Active Substance: INSULIN HUMAN
     Dosage: 40 U, BID
     Route: 065
     Dates: start: 2006
  2. HUMULIN R [Suspect]
     Active Substance: INSULIN HUMAN
     Indication: TYPE 2 DIABETES MELLITUS
     Dosage: 40 U, BID
     Route: 065
     Dates: start: 2006

REACTIONS (10)
  - Meniscus injury [Recovering/Resolving]
  - Hypertension [Unknown]
  - Stress [Unknown]
  - Hypertension [Unknown]
  - Malaise [Unknown]
  - Insomnia [Unknown]
  - Alopecia [Recovered/Resolved]
  - Urticaria [Recovered/Resolved]
  - Blood glucose increased [Unknown]
  - Blood glucose increased [Unknown]

NARRATIVE: CASE EVENT DATE: 2012
